FAERS Safety Report 6082018-9 (Version None)
Quarter: 2009Q1

REPORT INFORMATION
  Report Type: 
  Country: None (occurrence: None)
  Receive Date: 20090218
  Receipt Date: 20080818
  Transmission Date: 20090719
  Serious: No
  Sender: FDA-Public Use
  Company Number: US-BRISTOL-MYERS SQUIBB COMPANY-14314934

PATIENT
  Age: 63 Year
  Sex: Male

DRUGS (9)
  1. PRINIVIL [Suspect]
     Route: 048
  2. ATENOLOL [Suspect]
     Route: 048
  3. METFORMIN HCL [Suspect]
     Route: 065
  4. ZETIA [Suspect]
     Dosage: FORM = TABS
     Route: 048
  5. GLIPIZIDE [Suspect]
     Route: 065
  6. HYTRIN [Suspect]
     Route: 065
  7. NORVASC [Suspect]
     Route: 065
  8. OMACOR [Suspect]
     Route: 065
  9. HYDROCHLOROTHIAZIDE [Suspect]
     Route: 065

REACTIONS (1)
  - SEXUAL DYSFUNCTION [None]
